FAERS Safety Report 23216994 (Version 2)
Quarter: 2023Q4

REPORT INFORMATION
  Report Type: Report from Study
  Country: US (occurrence: US)
  Receive Date: 20231122
  Receipt Date: 20231124
  Transmission Date: 20240110
  Serious: No
  Sender: FDA-Public Use
  Company Number: US-ABBVIE-5503520

PATIENT
  Age: 73 Year
  Sex: Female

DRUGS (1)
  1. HUMIRA [Suspect]
     Active Substance: ADALIMUMAB
     Indication: Psoriatic arthropathy
     Route: 058
     Dates: start: 20231110

REACTIONS (5)
  - Retinal injury [Unknown]
  - Rheumatoid arthritis [Unknown]
  - Insomnia [Unknown]
  - Finger deformity [Unknown]
  - Device issue [Unknown]

NARRATIVE: CASE EVENT DATE: 20231101
